FAERS Safety Report 23526892 (Version 6)
Quarter: 2024Q2

REPORT INFORMATION
  Report Type: Spontaneous
  Country: FR (occurrence: FR)
  Receive Date: 20240215
  Receipt Date: 20240524
  Transmission Date: 20240716
  Serious: Yes (Other)
  Sender: FDA-Public Use
  Company Number: FR-BRISTOL-MYERS SQUIBB COMPANY-2023-106377

PATIENT
  Age: 65 Year
  Sex: Female

DRUGS (3)
  1. BORTEZOMIB [Suspect]
     Active Substance: BORTEZOMIB
     Indication: Plasma cell myeloma
     Dosage: UNK
     Route: 065
  2. DARZALEX [Suspect]
     Active Substance: DARATUMUMAB
     Indication: Plasma cell myeloma
     Dosage: UNK
     Route: 065
  3. LENALIDOMIDE [Suspect]
     Active Substance: LENALIDOMIDE
     Indication: Plasma cell myeloma
     Dosage: UNK
     Route: 065

REACTIONS (17)
  - Constipation [Recovering/Resolving]
  - Fatigue [Recovering/Resolving]
  - Rash maculo-papular [Recovered/Resolved]
  - Cough [Recovering/Resolving]
  - Dysgeusia [Recovering/Resolving]
  - Neuropathy peripheral [Recovering/Resolving]
  - Injection site reaction [Recovered/Resolved]
  - Decreased appetite [Recovering/Resolving]
  - Gastrooesophageal reflux disease [Recovering/Resolving]
  - Diarrhoea [Recovering/Resolving]
  - Abdominal pain [Recovering/Resolving]
  - Oedema peripheral [Unknown]
  - Dyspnoea [Recovering/Resolving]
  - Nausea [Recovering/Resolving]
  - Palpitations [Recovering/Resolving]
  - Myalgia [Unknown]
  - Off label use [Unknown]

NARRATIVE: CASE EVENT DATE: 20230724
